FAERS Safety Report 5743668-X (Version None)
Quarter: 2008Q2

REPORT INFORMATION
  Report Type: 
  Country: None (occurrence: None)
  Receive Date: 20080516
  Receipt Date: 20080506
  Transmission Date: 20081010
  Serious: Yes (Hospitalization, Other)
  Sender: FDA-Public Use
  Company Number: JHP200800136

PATIENT
  Age: 21 Year
  Sex: Female

DRUGS (5)
  1. PITOCIN [Suspect]
     Indication: UTERINE ATONY
     Dosage: 20 IU IN 500 ML OF RINGERS LACTATE, INTRAVENOUS
     Route: 042
  2. RITODRINE(RITODRINE) [Suspect]
     Indication: TOCOLYSIS
     Dosage: 0.6 MG/ML IN DEXTROSE AT 5% TO 250 ML/HR, INTRAVNEOUS
     Route: 042
  3. BUPIVACAINE [Concomitant]
  4. FENTANYL [Concomitant]
  5. OXYGEN (OXYGEN) [Concomitant]

REACTIONS (2)
  - ACUTE CORONARY SYNDROME [None]
  - ARTERIOSPASM CORONARY [None]
